FAERS Safety Report 9283863 (Version 2)
Quarter: 2013Q2

REPORT INFORMATION
  Report Type: Report from Study
  Country: BR (occurrence: BR)
  Receive Date: 20130510
  Receipt Date: 20130618
  Transmission Date: 20140414
  Serious: Yes (Death, Hospitalization, Other)
  Sender: FDA-Public Use
  Company Number: BR-ELI_LILLY_AND_COMPANY-BR201305000634

PATIENT
  Age: 81 Year
  Sex: Female
  Weight: 54 kg

DRUGS (9)
  1. TERIPARATIDE [Suspect]
     Indication: OSTEOPOROSIS
     Dosage: 20 UG, QD
     Route: 058
     Dates: start: 201208, end: 20130422
  2. DULOXETINE HYDROCHLORIDE [Suspect]
     Indication: PAIN
     Dosage: 60 MG, QD
     Route: 048
     Dates: start: 2011
  3. OMEPRAZOL [Concomitant]
     Dosage: UNK, OTHER
     Route: 065
  4. VITAMIN D [Concomitant]
     Dosage: UNK, UNKNOWN
     Route: 065
  5. AAS [Concomitant]
     Dosage: 100 MG, UNKNOWN
     Route: 065
  6. CONDROFLEX [Concomitant]
     Dosage: UNK, UNKNOWN
     Route: 065
  7. SINVASTATINA [Concomitant]
     Dosage: UNK, OTHER
     Route: 065
  8. MORFINA                            /00036301/ [Concomitant]
     Dosage: UNK, OTHER
     Route: 065
  9. CALCIUM [Concomitant]
     Dosage: UNK, UNKNOWN
     Route: 065

REACTIONS (12)
  - Cardiac arrest [Fatal]
  - Cerebrovascular accident [Fatal]
  - Pneumonia [Fatal]
  - Erysipelas [Recovering/Resolving]
  - Herpes zoster [Unknown]
  - Diabetes mellitus [Unknown]
  - Blood glucose fluctuation [Unknown]
  - Oxygen saturation decreased [Unknown]
  - Blood pressure fluctuation [Unknown]
  - Abdominal distension [Unknown]
  - Hypertension [Unknown]
  - Asthenia [Unknown]
